FAERS Safety Report 16772909 (Version 2)
Quarter: 2019Q3

REPORT INFORMATION
  Report Type: Report from Study
  Country: US (occurrence: US)
  Receive Date: 20190904
  Receipt Date: 20190911
  Transmission Date: 20191005
  Serious: Yes (Hospitalization, Other)
  Sender: FDA-Public Use
  Company Number: US-GILEAD-2019-0425593

PATIENT
  Age: 61 Year
  Sex: Female

DRUGS (1)
  1. AMBRISENTAN [Suspect]
     Active Substance: AMBRISENTAN
     Indication: PULMONARY HYPERTENSION
     Dosage: 10 MG, QD
     Route: 065
     Dates: start: 20171117

REACTIONS (6)
  - Pulmonary arterial hypertension [Unknown]
  - Peripheral swelling [Unknown]
  - Fluid overload [Unknown]
  - Dyspnoea [Unknown]
  - Tremor [Unknown]
  - Abdominal distension [Unknown]
